FAERS Safety Report 9810070 (Version 15)
Quarter: 2017Q3

REPORT INFORMATION
  Report Type: Spontaneous
  Country: US (occurrence: US)
  Receive Date: 20140110
  Receipt Date: 20170814
  Transmission Date: 20171128
  Serious: Yes (Other)
  Sender: FDA-Public Use
  Company Number: US-SANOFI-AVENTIS-2013SA071481

PATIENT
  Age: 56 Year
  Sex: Male
  Weight: 74.1 kg

DRUGS (5)
  1. ASPIRIN. [Suspect]
     Active Substance: ASPIRIN
     Route: 065
     Dates: start: 2008
  2. PLAVIX [Suspect]
     Active Substance: CLOPIDOGREL BISULFATE
     Indication: PROPHYLAXIS
     Route: 048
     Dates: start: 20031223, end: 20031223
  3. LIPITOR [Concomitant]
     Active Substance: ATORVASTATIN CALCIUM
     Indication: BLOOD CHOLESTEROL INCREASED
  4. NITROGLYCERINE [Concomitant]
     Active Substance: NITROGLYCERIN
  5. PLAVIX [Suspect]
     Active Substance: CLOPIDOGREL BISULFATE
     Indication: PROPHYLAXIS
     Route: 048
     Dates: start: 2008, end: 20090102

REACTIONS (6)
  - Aneurysm [Unknown]
  - Hemiparesis [Unknown]
  - Cerebral haemorrhage [Unknown]
  - Haemorrhage intracranial [Unknown]
  - Sensory disturbance [Unknown]
  - Seizure [Unknown]

NARRATIVE: CASE EVENT DATE: 2009
